FAERS Safety Report 4310866-1 (Version None)
Quarter: 2004Q1

REPORT INFORMATION
  Report Type: 
  Country: None (occurrence: None)
  Receive Date: 20040304
  Receipt Date: 20040223
  Transmission Date: 20041129
  Serious: Yes (Other)
  Sender: FDA-Public Use
  Company Number: PHFR2004GB01162

PATIENT
  Sex: Female

DRUGS (1)
  1. ESTRADIOL [Suspect]
     Dosage: 37.5MG/DAY

REACTIONS (1)
  - CEREBROVASCULAR ACCIDENT [None]
